FAERS Safety Report 5072587-X (Version None)
Quarter: 2006Q3

REPORT INFORMATION
  Report Type: 
  Country: None (occurrence: None)
  Receive Date: 20060807
  Receipt Date: 20060727
  Transmission Date: 20061208
  Serious: Yes (Hospitalization)
  Sender: FDA-Public Use
  Company Number: AU-JNJFOC-20060705411

PATIENT
  Sex: Male

DRUGS (8)
  1. RISPERDAL [Suspect]
     Route: 048
  2. RISPERDAL [Suspect]
     Route: 048
  3. RISPERDAL [Suspect]
     Route: 048
  4. RISPERDAL [Suspect]
     Indication: SCHIZOPHRENIA
     Route: 048
  5. CLOZAPINE [Suspect]
     Route: 048
  6. CLOZAPINE [Suspect]
     Route: 048
  7. CLOZAPINE [Suspect]
     Indication: SCHIZOPHRENIA
     Route: 048
  8. CHLORPROMAZINE HYDROCHLORIDE [Suspect]
     Indication: DRUG USE FOR UNKNOWN INDICATION
     Route: 048

REACTIONS (10)
  - EJECTION FRACTION DECREASED [None]
  - HEPATIC FUNCTION ABNORMAL [None]
  - HYPOTENSION [None]
  - MYOCARDITIS [None]
  - MYOGLOBINURIA [None]
  - OXYGEN SATURATION DECREASED [None]
  - PYREXIA [None]
  - RENAL IMPAIRMENT [None]
  - TACHYCARDIA [None]
  - TROPONIN INCREASED [None]
